FAERS Safety Report 25268668 (Version 1)
Quarter: 2025Q2

REPORT INFORMATION
  Report Type: Report from Study
  Country: US (occurrence: US)
  Receive Date: 20250505
  Receipt Date: 20250505
  Transmission Date: 20250717
  Serious: Yes (Hospitalization, Other)
  Sender: ABBVIE
  Company Number: US-ABBVIE-5955961

PATIENT
  Age: 70 Year
  Sex: Female

DRUGS (1)
  1. SKYRIZI [Suspect]
     Active Substance: RISANKIZUMAB-RZAA
     Indication: Psoriasis
     Route: 058
     Dates: start: 20240723

REACTIONS (10)
  - Oxygen saturation decreased [Recovered/Resolved]
  - Influenza [Recovered/Resolved]
  - Post-acute COVID-19 syndrome [Recovered/Resolved]
  - Therapeutic response shortened [Recovering/Resolving]
  - Pain in extremity [Unknown]
  - Dyspnoea [Recovered/Resolved]
  - Heart rate increased [Recovered/Resolved]
  - Pneumonia [Recovered/Resolved]
  - Pulmonary thrombosis [Recovering/Resolving]
  - Embolism [Unknown]

NARRATIVE: CASE EVENT DATE: 20240101
